FAERS Safety Report 7404308-7 (Version None)
Quarter: 2011Q2

REPORT INFORMATION
  Report Type: 
  Country: None (occurrence: None)
  Receive Date: 20110408
  Receipt Date: 20110405
  Transmission Date: 20111010
  Serious: Yes (Death, Other)
  Sender: FDA-Public Use
  Company Number: PHHY2011TW26835

PATIENT
  Age: 20 Year
  Sex: Female

DRUGS (6)
  1. TOPOTECAN [Suspect]
     Indication: ACUTE LYMPHOCYTIC LEUKAEMIA
     Dosage: 1 MG/M2/ DAY, ON 2 -6 DAYS
  2. CISPLATIN [Suspect]
     Indication: ACUTE LYMPHOCYTIC LEUKAEMIA
     Dosage: 30 MG/M2/ DAY ON DAY 3
  3. GEMCITABINE [Suspect]
     Indication: ACUTE LYMPHOCYTIC LEUKAEMIA
     Dosage: 10 MG/M2,/MIN OVER 6 HOURS
  4. THIOTEPA [Concomitant]
     Dosage: 15 MG/M2/DAY
  5. VINORELBINE [Suspect]
     Indication: ACUTE LYMPHOCYTIC LEUKAEMIA
     Dosage: 20 MG/M2, DAY, ON1, 8, 15 AND 22 DAYS
  6. DEXAMETHASONE [Suspect]
     Indication: ACUTE LYMPHOCYTIC LEUKAEMIA
     Dosage: 45 MG/DAY FROM DAY 8 TO 15.4

REACTIONS (12)
  - ALTERED STATE OF CONSCIOUSNESS [None]
  - COMA SCALE ABNORMAL [None]
  - NEUTROPENIA [None]
  - SOMNOLENCE [None]
  - MEMORY IMPAIRMENT [None]
  - LIVER DISORDER [None]
  - CSF GLUCOSE INCREASED [None]
  - DISORIENTATION [None]
  - RESPIRATORY ALKALOSIS [None]
  - DEATH [None]
  - HYPERAMMONAEMIA [None]
  - CONVULSION [None]
